FAERS Safety Report 8270536-4 (Version None)
Quarter: 2012Q2

REPORT INFORMATION
  Report Type: 
  Country: None (occurrence: None)
  Receive Date: 20120410
  Receipt Date: 20120405
  Transmission Date: 20120825
  Serious: Yes (Death, Hospitalization, Other)
  Sender: FDA-Public Use
  Company Number: US-ASTELLAS-2012US002581

PATIENT
  Sex: Male

DRUGS (6)
  1. LASIX [Concomitant]
     Indication: PRODUCT USED FOR UNKNOWN INDICATION
     Dosage: 40 MG, UID/QD
     Route: 065
  2. MYCOPHENOLATE MOFETIL (CELLCEPT) [Concomitant]
     Indication: PRODUCT USED FOR UNKNOWN INDICATION
     Dosage: UNK
     Route: 065
  3. PREDNISONE TAB [Concomitant]
     Indication: PRODUCT USED FOR UNKNOWN INDICATION
     Dosage: 5 MG, UNKNOWN/D
     Route: 065
  4. PROGRAF [Suspect]
     Indication: LIVER TRANSPLANT
     Dosage: 4 MG, BID
     Route: 048
     Dates: start: 20110316, end: 20110525
  5. DULCOLAX [Concomitant]
     Indication: PRODUCT USED FOR UNKNOWN INDICATION
     Dosage: UNK
     Route: 065
  6. MIRALAX [Concomitant]
     Indication: PRODUCT USED FOR UNKNOWN INDICATION
     Dosage: UNK
     Route: 065

REACTIONS (17)
  - IDIOPATHIC THROMBOCYTOPENIC PURPURA [None]
  - CONFUSIONAL STATE [None]
  - ASCITES [None]
  - ABDOMINAL MASS [None]
  - MYELOPATHY [None]
  - FALL [None]
  - PROTEINURIA [None]
  - WOUND INFECTION [None]
  - DEPRESSION [None]
  - HAEMATOCHEZIA [None]
  - BLOOD MAGNESIUM DECREASED [None]
  - SUPRAVENTRICULAR TACHYCARDIA [None]
  - FAILURE TO THRIVE [None]
  - HERPES ZOSTER [None]
  - RESPIRATORY DISTRESS [None]
  - SUBDURAL HAEMATOMA [None]
  - DEHYDRATION [None]
